FAERS Safety Report 9360724 (Version 7)
Quarter: 2017Q2

REPORT INFORMATION
  Report Type: Spontaneous
  Country: JP (occurrence: JP)
  Receive Date: 20130621
  Receipt Date: 20170404
  Transmission Date: 20170830
  Serious: Yes (Hospitalization, Other)
  Sender: FDA-Public Use
  Company Number: JP-JNJFOC-20130610049

PATIENT
  Age: 67 Year
  Sex: Female
  Weight: 56 kg

DRUGS (15)
  1. PREDNISOLONE. [Suspect]
     Active Substance: PREDNISOLONE
     Indication: HERPES ZOSTER OTICUS
     Route: 048
     Dates: start: 20130411, end: 20130429
  2. GOLIMUMAB [Suspect]
     Active Substance: GOLIMUMAB
     Indication: RHEUMATOID ARTHRITIS
     Route: 058
     Dates: start: 20140421, end: 20170123
  3. PROGRAF [Suspect]
     Active Substance: TACROLIMUS\TACROLIMUS ANHYDROUS
     Indication: PRODUCT USED FOR UNKNOWN INDICATION
     Route: 048
     Dates: start: 20130625, end: 20130724
  4. PROGRAF [Suspect]
     Active Substance: TACROLIMUS\TACROLIMUS ANHYDROUS
     Indication: PRODUCT USED FOR UNKNOWN INDICATION
     Route: 048
     Dates: start: 20130725
  5. PREDNISOLONE. [Suspect]
     Active Substance: PREDNISOLONE
     Indication: HERPES ZOSTER OTICUS
     Route: 048
     Dates: start: 20130411, end: 20130411
  6. GASPORT [Concomitant]
     Active Substance: FAMOTIDINE
     Route: 048
     Dates: start: 20090904
  7. LOXOPROFEN [Concomitant]
     Active Substance: LOXOPROFEN
     Route: 048
     Dates: start: 20100205
  8. PROGRAF [Suspect]
     Active Substance: TACROLIMUS\TACROLIMUS ANHYDROUS
     Indication: PRODUCT USED FOR UNKNOWN INDICATION
     Route: 048
     Dates: start: 20100205, end: 20130624
  9. PREDNISOLONE. [Suspect]
     Active Substance: PREDNISOLONE
     Indication: HERPES ZOSTER OTICUS
     Route: 048
     Dates: start: 20130826
  10. GOLIMUMAB [Suspect]
     Active Substance: GOLIMUMAB
     Indication: RHEUMATOID ARTHRITIS
     Route: 058
     Dates: start: 20120305, end: 20130411
  11. LIPITOR [Concomitant]
     Active Substance: ATORVASTATIN CALCIUM
     Route: 048
     Dates: start: 20100428
  12. PLAVIX [Concomitant]
     Active Substance: CLOPIDOGREL BISULFATE
     Route: 048
     Dates: start: 20090601
  13. PREDNISOLONE. [Suspect]
     Active Substance: PREDNISOLONE
     Indication: HERPES ZOSTER OTICUS
     Route: 048
     Dates: start: 20130430, end: 20130514
  14. RECALBON [Concomitant]
     Active Substance: MINODRONIC ACID
     Route: 048
  15. PREDNISOLONE. [Suspect]
     Active Substance: PREDNISOLONE
     Indication: HERPES ZOSTER OTICUS
     Route: 048
     Dates: start: 20130528, end: 20130825

REACTIONS (3)
  - Pneumonia [Recovered/Resolved]
  - Hypoacusis [Recovering/Resolving]
  - Herpes zoster oticus [Recovered/Resolved with Sequelae]

NARRATIVE: CASE EVENT DATE: 20130411
